FAERS Safety Report 9382723 (Version 1)
Quarter: 2013Q3

REPORT INFORMATION
  Report Type: Report from Study
  Country: US (occurrence: US)
  Receive Date: 20130703
  Receipt Date: 20130703
  Transmission Date: 20140515
  Serious: Yes (Hospitalization)
  Sender: FDA-Public Use
  Company Number: US-FRI-1000046456

PATIENT
  Age: 57 Year
  Sex: Male
  Weight: 120.31 kg

DRUGS (6)
  1. ACLIDINIUM [Suspect]
     Indication: CHRONIC OBSTRUCTIVE PULMONARY DISEASE
     Dosage: 800 UG
     Route: 055
     Dates: start: 20120530, end: 20120624
  2. BENAZEPRIL W/ HYDROCHLOROTHIAZIDE [Concomitant]
     Indication: HYPERTENSION
     Dosage: 20/25 MG
     Route: 048
     Dates: start: 2001
  3. AMLODIPINE [Concomitant]
     Indication: HYPERTENSION
     Route: 048
     Dates: start: 2001
  4. IBUPROFEN [Concomitant]
     Indication: PAIN IN EXTREMITY
     Route: 048
     Dates: start: 20120229
  5. ADVIL [Concomitant]
     Indication: MUSCLE STRAIN
     Route: 048
     Dates: start: 20120613
  6. CHLORZOXAZONE [Concomitant]
     Indication: MUSCLE STRAIN
     Route: 048
     Dates: start: 20120504, end: 20120512

REACTIONS (1)
  - Convulsion [Recovering/Resolving]
